FAERS Safety Report 8838742 (Version 1)
Quarter: 2012Q4

REPORT INFORMATION
  Report Type: 
  Country: CA (occurrence: CA)
  Receive Date: 20121012
  Receipt Date: 20121012
  Transmission Date: 20130627
  Serious: Yes (Hospitalization, Other)
  Sender: FDA-Public Use
  Company Number: CA-009507513-1210CAN005836

PATIENT
  Age: 64 Year
  Sex: Male

DRUGS (5)
  1. ORGARAN [Suspect]
     Indication: PRODUCT USED FOR UNKNOWN INDICATION
  2. HEPARIN SODIUM [Suspect]
     Dosage: 15000 IU, UNK
     Route: 051
  3. HEPARIN SODIUM [Suspect]
     Dosage: 5000 IU, UNK
     Route: 058
  4. INNOHEP [Suspect]
     Indication: PRODUCT USED FOR UNKNOWN INDICATION
     Dosage: UNK, Once
     Route: 051
  5. HEPARIN SODIUM [Suspect]
     Dosage: 5000 IU, UNK

REACTIONS (5)
  - Amputation [Unknown]
  - Peripheral artery thrombosis [Unknown]
  - Heparin-induced thrombocytopenia [Unknown]
  - Injection site necrosis [Unknown]
  - Necrosis ischaemic [Unknown]
